FAERS Safety Report 14820337 (Version 5)
Quarter: 2018Q3

REPORT INFORMATION
  Report Type: Report from Study
  Country: US (occurrence: US)
  Receive Date: 20180427
  Receipt Date: 20180731
  Transmission Date: 20181010
  Serious: Yes (Death, Life-Threatening, Hospitalization, Other)
  Sender: FDA-Public Use
  Company Number: US-EISAI MEDICAL RESEARCH-EC-2018-038269

PATIENT
  Age: 16 Year
  Sex: Male
  Weight: 53.5 kg

DRUGS (12)
  1. LACTULOSE. [Concomitant]
     Active Substance: LACTULOSE
  2. POLYETHYLENE GLYCOL [Concomitant]
     Active Substance: POLYETHYLENE GLYCOLS
  3. PEPTAMEN [Concomitant]
  4. SULFAMETHOXAZOLE [Concomitant]
     Active Substance: SULFAMETHOXAZOLE
  5. DOCUSATE SODIUM. [Concomitant]
     Active Substance: DOCUSATE SODIUM
  6. DIPHENHYDRAMINE. [Concomitant]
     Active Substance: DIPHENHYDRAMINE
  7. ERIBULIN [Suspect]
     Active Substance: ERIBULIN
     Indication: EPITHELIOID SARCOMA METASTATIC
     Route: 041
     Dates: start: 20180418, end: 20180418
  8. VORICONAZOLE. [Concomitant]
     Active Substance: VORICONAZOLE
  9. PERIACTIN STIMULATOR [Concomitant]
  10. BOOST BREEZE [Concomitant]
  11. HYDROMORPHONE [Concomitant]
     Active Substance: HYDROMORPHONE
  12. ZOFRAN [Concomitant]
     Active Substance: ONDANSETRON HYDROCHLORIDE

REACTIONS (6)
  - Lung infection [Not Recovered/Not Resolved]
  - Pleural effusion [Not Recovered/Not Resolved]
  - Neutropenia [Recovered/Resolved]
  - Pneumothorax [Recovered/Resolved]
  - Respiratory failure [Fatal]
  - Pulmonary oedema [Not Recovered/Not Resolved]

NARRATIVE: CASE EVENT DATE: 20180419
